FAERS Safety Report 6209222-0 (Version None)
Quarter: 2009Q2

REPORT INFORMATION
  Report Type: 
  Country: None (occurrence: None)
  Receive Date: 20090529
  Receipt Date: 20090515
  Transmission Date: 20091009
  Serious: Yes (Other)
  Sender: FDA-Public Use
  Company Number: GB-BAUSCH-2009BL001759

PATIENT
  Age: 53 Year
  Sex: Male
  Weight: 103 kg

DRUGS (3)
  1. DEXAMETHASONE 4MG TAB [Suspect]
     Indication: MULTIPLE MYELOMA
     Dates: start: 20090330, end: 20090406
  2. BORTEZOMIB [Suspect]
     Indication: MULTIPLE MYELOMA
     Route: 042
     Dates: start: 20090330, end: 20090406
  3. FRAGMIN [Concomitant]
     Indication: DEEP VEIN THROMBOSIS
     Route: 058

REACTIONS (5)
  - DIARRHOEA [None]
  - HERPES ZOSTER [None]
  - PYREXIA [None]
  - THROMBOCYTOPENIA [None]
  - WEIGHT DECREASED [None]
